FAERS Safety Report 8022232-6 (Version None)
Quarter: 2011Q4

REPORT INFORMATION
  Report Type: 
  Country: None (occurrence: None)
  Receive Date: 20111230
  Receipt Date: 20111216
  Transmission Date: 20120403
  Serious: Yes (Hospitalization)
  Sender: FDA-Public Use
  Company Number: 2011AP002993

PATIENT
  Age: 34 Year
  Sex: Female

DRUGS (3)
  1. LAMOTRIGINE [Suspect]
     Indication: PRODUCT USED FOR UNKNOWN INDICATION
  2. ALCOHOL [Suspect]
     Indication: PRODUCT USED FOR UNKNOWN INDICATION
  3. FLUOXETINE HYDROCHLORIDE [Suspect]
     Indication: PRODUCT USED FOR UNKNOWN INDICATION

REACTIONS (11)
  - MATERNAL EXPOSURE DURING PREGNANCY [None]
  - CONVULSION [None]
  - NEUROTOXICITY [None]
  - MULTIPLE DRUG OVERDOSE INTENTIONAL [None]
  - AGITATION [None]
  - ARRHYTHMIA [None]
  - DEPRESSED LEVEL OF CONSCIOUSNESS [None]
  - BLOOD PRESSURE DECREASED [None]
  - MUSCLE TWITCHING [None]
  - TREMOR [None]
  - TACHYCARDIA [None]
